FAERS Safety Report 14539064 (Version 4)
Quarter: 2018Q1

REPORT INFORMATION
  Report Type: Report from Study
  Country: CO (occurrence: CO)
  Receive Date: 20180216
  Receipt Date: 20180329
  Transmission Date: 20180509
  Serious: Yes (Hospitalization, Other)
  Sender: FDA-Public Use
  Company Number: CO-ASTELLAS-2018US007742

PATIENT
  Age: 83 Year
  Sex: Male
  Weight: 45 kg

DRUGS (10)
  1. CLOPIDOGREL [Concomitant]
     Active Substance: CLOPIDOGREL BISULFATE
     Indication: ANTICOAGULANT THERAPY
     Route: 048
     Dates: start: 2013
  2. VARTERAL [Concomitant]
     Indication: HYPERTENSION
     Dosage: 160/5 MG, ONCE DAILY
     Route: 048
     Dates: start: 2014
  3. ATORVASTATIN [Concomitant]
     Active Substance: ATORVASTATIN
     Indication: HYPERCHOLESTEROLAEMIA
     Route: 048
     Dates: start: 2013
  4. ACETYLSALICYLIC ACID [Concomitant]
     Active Substance: ASPIRIN
     Indication: CARDIOVASCULAR DISORDER
     Route: 048
     Dates: start: 2013
  5. METHADONE [Concomitant]
     Active Substance: METHADONE HYDROCHLORIDE
     Indication: PAIN MANAGEMENT
     Route: 048
     Dates: start: 20180104
  6. ENZALUTAMIDE [Suspect]
     Active Substance: ENZALUTAMIDE
     Route: 048
  7. ESOMEPRAZOLE [Concomitant]
     Active Substance: ESOMEPRAZOLE
     Indication: GASTRIC DISORDER
     Route: 048
     Dates: start: 20180129
  8. ENZALUTAMIDE [Suspect]
     Active Substance: ENZALUTAMIDE
     Indication: HORMONE-REFRACTORY PROSTATE CANCER
     Route: 048
     Dates: start: 20171227
  9. BISACODYL. [Concomitant]
     Active Substance: BISACODYL
     Indication: LAXATIVE SUPPORTIVE CARE
     Route: 048
     Dates: start: 201711
  10. PREGABALIN. [Concomitant]
     Active Substance: PREGABALIN
     Indication: PAIN MANAGEMENT
     Route: 048
     Dates: start: 201712

REACTIONS (12)
  - Groin pain [Not Recovered/Not Resolved]
  - Hypokinesia [Not Recovered/Not Resolved]
  - Weight decreased [Not Recovered/Not Resolved]
  - Vomiting [Recovering/Resolving]
  - Syncope [Unknown]
  - Product supply issue [Unknown]
  - Loss of consciousness [Recovering/Resolving]
  - Decreased appetite [Not Recovered/Not Resolved]
  - Gastrointestinal haemorrhage [Recovering/Resolving]
  - Treatment noncompliance [Unknown]
  - Hypotension [Recovering/Resolving]
  - Urinary tract infection [Recovering/Resolving]

NARRATIVE: CASE EVENT DATE: 20180123
